FAERS Safety Report 12981751 (Version 1)
Quarter: 2016Q4

REPORT INFORMATION
  Report Type: Report from Study
  Country: JP (occurrence: JP)
  Receive Date: 20161129
  Receipt Date: 20161129
  Transmission Date: 20170207
  Serious: Yes (Other)
  Sender: FDA-Public Use
  Company Number: JP-ROCHE-1861093

PATIENT
  Sex: Female

DRUGS (1)
  1. BEVACIZUMAB [Suspect]
     Active Substance: BEVACIZUMAB
     Indication: OVARIAN CANCER RECURRENT
     Dosage: DOSAGE IS UNCERTAIN. ?12 CYCLES
     Route: 042

REACTIONS (3)
  - Lacunar infarction [Unknown]
  - Cognitive disorder [Unknown]
  - Proteinuria [Unknown]
